FAERS Safety Report 11573343 (Version 3)
Quarter: 2015Q4

REPORT INFORMATION
  Report Type: Spontaneous
  Country: US (occurrence: US)
  Receive Date: 20150916
  Receipt Date: 20151104
  Transmission Date: 20160304
  Serious: No
  Sender: FDA-Public Use
  Company Number: US-ELI_LILLY_AND_COMPANY-US200910007865

PATIENT
  Age: 79 Year
  Sex: Female
  Weight: 58.96 kg

DRUGS (5)
  1. FORTEO [Suspect]
     Active Substance: TERIPARATIDE
     Dosage: 20 UG, DAILY (1/D)
     Route: 065
  2. CALCIUM [Concomitant]
     Active Substance: CALCIUM
  3. FORTEO [Suspect]
     Active Substance: TERIPARATIDE
     Dosage: 20 UG, DAILY (1/D)
     Route: 065
  4. FORTEO [Suspect]
     Active Substance: TERIPARATIDE
     Dosage: 20 UG, QD
  5. FORTEO [Suspect]
     Active Substance: TERIPARATIDE
     Indication: OSTEOPOROSIS
     Dosage: 20 UG, DAILY (1/D)
     Route: 065
     Dates: start: 200907

REACTIONS (15)
  - Medical device discomfort [Unknown]
  - Arthralgia [Unknown]
  - Rhinorrhoea [Unknown]
  - Dry eye [Unknown]
  - Vitamin D decreased [Unknown]
  - Hip surgery [Unknown]
  - Lacrimation increased [Unknown]
  - Rash pruritic [Recovering/Resolving]
  - Constipation [Not Recovered/Not Resolved]
  - Fatigue [Not Recovered/Not Resolved]
  - Blood cholesterol increased [Unknown]
  - Sudden onset of sleep [Unknown]
  - Low density lipoprotein increased [Unknown]
  - Visual impairment [Unknown]
  - Impaired healing [Unknown]

NARRATIVE: CASE EVENT DATE: 200910
